FAERS Safety Report 13926086 (Version 1)
Quarter: 2017Q3

REPORT INFORMATION
  Report Type: Report from Study
  Country: MX (occurrence: MX)
  Receive Date: 20170831
  Receipt Date: 20170831
  Transmission Date: 20171127
  Serious: Yes (Other)
  Sender: FDA-Public Use
  Company Number: MX-UCBSA-2017034061

PATIENT
  Age: 7 Month
  Sex: Female

DRUGS (2)
  1. RIVOTRIL [Concomitant]
     Active Substance: CLONAZEPAM
     Indication: RAPID EYE MOVEMENTS SLEEP ABNORMAL
     Dosage: 4 GTT, ONCE DAILY (QD)
     Dates: start: 201505
  2. LEVETIRACETAM. [Suspect]
     Active Substance: LEVETIRACETAM
     Indication: SEIZURE
     Dosage: (3ML AT MORNING AND 2ML AT NIGHT), 2X/DAY (BID)
     Route: 048
     Dates: start: 201505, end: 201506

REACTIONS (4)
  - Incorrect route of drug administration [Unknown]
  - Cerebral palsy [Unknown]
  - Off label use [Unknown]
  - Nervous system disorder [Unknown]

NARRATIVE: CASE EVENT DATE: 201505
